FAERS Safety Report 7519432-8 (Version None)
Quarter: 2011Q2

REPORT INFORMATION
  Report Type: 
  Country: None (occurrence: None)
  Receive Date: 20110602
  Receipt Date: 20110518
  Transmission Date: 20111010
  Serious: Yes (Death, Other)
  Sender: FDA-Public Use
  Company Number: US-JUTA GMBH-2011-07424

PATIENT
  Age: 38 Year
  Sex: Male

DRUGS (1)
  1. TRAMADOL HCL [Suspect]
     Indication: PRODUCT USED FOR UNKNOWN INDICATION
     Dosage: UNK
     Route: 048

REACTIONS (7)
  - CONVULSION [None]
  - BACK INJURY [None]
  - DEATH [None]
  - LOSS OF CONSCIOUSNESS [None]
  - INJURY [None]
  - HEAD INJURY [None]
  - ROAD TRAFFIC ACCIDENT [None]
